FAERS Safety Report 10488505 (Version 1)
Quarter: 2014Q4

REPORT INFORMATION
  Report Type: Report from Study
  Country: US (occurrence: US)
  Receive Date: 20141002
  Receipt Date: 20141002
  Transmission Date: 20150528
  Serious: Yes (Hospitalization, Other)
  Sender: FDA-Public Use
  Company Number: US-ROCHE-1468172

PATIENT
  Age: 18 Year
  Sex: Male
  Weight: 19.9 kg

DRUGS (28)
  1. GLYCOPYRROLATE. [Concomitant]
     Active Substance: GLYCOPYRROLATE
  2. NUTROPIN AQ [Suspect]
     Active Substance: SOMATROPIN
     Route: 058
     Dates: start: 199212
  3. NUTROPIN AQ [Suspect]
     Active Substance: SOMATROPIN
     Route: 058
  4. CLONAZEPAM. [Suspect]
     Active Substance: CLONAZEPAM
     Indication: HYPERREFLEXIA
     Dosage: 1.5 CC
     Route: 065
  5. FOLATE [Concomitant]
     Active Substance: FOLATE SODIUM
  6. PEDIASURE [Concomitant]
     Active Substance: VITAMINS
  7. CLONAZEPAM. [Suspect]
     Active Substance: CLONAZEPAM
     Indication: HYPERTONIA
     Dosage: 0.12MG/ML
     Route: 065
  8. SINEMET [Concomitant]
     Active Substance: CARBIDOPA\LEVODOPA
     Dosage: 8 MG IN MORNING; 6 MG IN NOON; 3 MG LATER IN DAY
     Route: 065
  9. CLARITIN [Concomitant]
     Active Substance: LORATADINE
  10. ALBUTEROL. [Concomitant]
     Active Substance: ALBUTEROL
     Dosage: PRN
     Route: 065
  11. PULMICORT TURBUHALER [Concomitant]
     Active Substance: BUDESONIDE
  12. NUTROPIN AQ [Suspect]
     Active Substance: SOMATROPIN
     Indication: GROWTH HORMONE DEFICIENCY
     Route: 058
  13. METOCLOPRAMIDE. [Concomitant]
     Active Substance: METOCLOPRAMIDE
     Route: 065
  14. POLY-VI-SOL [Concomitant]
  15. LODOSYN [Concomitant]
     Active Substance: CARBIDOPA
     Route: 065
  16. DIOCTO [Concomitant]
     Active Substance: DOCUSATE SODIUM
     Dosage: 7.5CC
     Route: 065
  17. NUTROPIN AQ [Suspect]
     Active Substance: SOMATROPIN
     Route: 058
  18. NUTROPIN AQ [Suspect]
     Active Substance: SOMATROPIN
     Route: 058
  19. NASACORT SPRAY [Concomitant]
  20. PROPULSID [Concomitant]
     Active Substance: CISAPRIDE
     Dosage: 6 CC BEFORE MEALS
     Route: 065
  21. TAGAMET [Concomitant]
     Active Substance: CIMETIDINE
  22. REGLAN [Concomitant]
     Active Substance: METOCLOPRAMIDE HYDROCHLORIDE
  23. NUTROPIN AQ [Suspect]
     Active Substance: SOMATROPIN
     Route: 058
  24. DOCUSATE [Concomitant]
     Active Substance: DOCUSATE
  25. LORATADINE. [Concomitant]
     Active Substance: LORATADINE
     Route: 065
  26. NASACORT [Concomitant]
     Active Substance: TRIAMCINOLONE ACETONIDE
  27. PROTROPIN [Concomitant]
     Active Substance: SOMATREM
     Route: 065
  28. OMEPRAZOLE. [Concomitant]
     Active Substance: OMEPRAZOLE
     Route: 065

REACTIONS (24)
  - Decubitus ulcer [Recovered/Resolved]
  - Rhinorrhoea [Unknown]
  - Vomiting [Unknown]
  - Contusion [Unknown]
  - Precocious puberty [Unknown]
  - Catheter site erythema [Unknown]
  - Bone density decreased [Unknown]
  - Paranasal sinus hypersecretion [Unknown]
  - Scoliosis [Unknown]
  - Decubitus ulcer [Unknown]
  - Respiratory muscle weakness [Unknown]
  - Respiratory distress [Unknown]
  - Salivary hypersecretion [Unknown]
  - Erythema [Unknown]
  - Vitamin D decreased [Unknown]
  - Insulin-like growth factor increased [Unknown]
  - Constipation [Unknown]
  - Vomiting [Unknown]
  - Dyspnoea [Recovered/Resolved]
  - Contusion [Unknown]
  - Weight decreased [Unknown]
  - Hand fracture [Unknown]
  - Choking [Unknown]
  - Gingival hypertrophy [Unknown]

NARRATIVE: CASE EVENT DATE: 200906
